FAERS Safety Report 5510578-2 (Version None)
Quarter: 2007Q4

REPORT INFORMATION
  Report Type: 
  Country: None (occurrence: None)
  Receive Date: 20071108
  Receipt Date: 20071101
  Transmission Date: 20080405
  Serious: Yes (Hospitalization)
  Sender: FDA-Public Use
  Company Number: US-ELI_LILLY_AND_COMPANY-US200711000538

PATIENT
  Sex: Female

DRUGS (5)
  1. BYETTA [Suspect]
     Dosage: 5 UG, 2/D
     Route: 058
     Dates: start: 20071025
  2. METFORMIN HCL [Concomitant]
     Dosage: 1500 MG, DAILY (1/D)
     Route: 048
     Dates: start: 20070501
  3. DEMEROL [Concomitant]
     Dosage: UNK, UNKNOWN
     Dates: end: 20071001
  4. VALIUM [Concomitant]
     Dosage: UNK, UNKNOWN
     Dates: end: 20071001
  5. PHENERGAN HCL [Concomitant]
     Dosage: UNK, UNKNOWN
     Dates: end: 20071001

REACTIONS (4)
  - INTERVERTEBRAL DISC PROTRUSION [None]
  - MUSCULOSKELETAL PAIN [None]
  - NERVE INJURY [None]
  - SENSATION OF PRESSURE [None]
